FAERS Safety Report 8434982-8 (Version None)
Quarter: 2012Q2

REPORT INFORMATION
  Report Type: 
  Country: None (occurrence: None)
  Receive Date: 20120608
  Receipt Date: 20120523
  Transmission Date: 20120825
  Serious: Yes (Other)
  Sender: FDA-Public Use
  Company Number: 2012AP001559

PATIENT
  Age: 19 Year
  Sex: Female

DRUGS (1)
  1. ZOLPIDEM [Suspect]
     Indication: ADJUSTMENT DISORDER WITH ANXIETY
     Dosage: 10 MG;PRN PO
     Route: 048
     Dates: start: 20120504, end: 20120504

REACTIONS (1)
  - HALLUCINATION, VISUAL [None]
